FAERS Safety Report 14984264 (Version 1)
Quarter: 2018Q2

REPORT INFORMATION
  Report Type: Report from Study
  Country: KR (occurrence: KR)
  Receive Date: 20180607
  Receipt Date: 20180607
  Transmission Date: 20180711
  Serious: Yes (Hospitalization, Other)
  Sender: FDA-Public Use
  Company Number: KR-JAZZ-2017-KR-015480

PATIENT
  Age: 13 Year
  Sex: Male
  Weight: 71 kg

DRUGS (51)
  1. ONSERAN [Concomitant]
     Indication: NAUSEA
  2. FUROSEMIDE. [Concomitant]
     Active Substance: FUROSEMIDE
     Indication: OEDEMATOUS KIDNEY
  3. FUROSEMIDE. [Concomitant]
     Active Substance: FUROSEMIDE
     Indication: ASCITES
  4. PANTOPRAZOLE SODIUM SESQUIHYDRATE [Concomitant]
     Active Substance: PANTOPRAZOLE SODIUM
     Indication: DUODENAL ULCER
  5. ACICLOVIR [Concomitant]
     Active Substance: ACYCLOVIR
     Indication: ECZEMA HERPETICUM
  6. ATIVAN [Concomitant]
     Active Substance: LORAZEPAM
     Indication: NEUROSIS
  7. ALBUMIN [Concomitant]
     Active Substance: ALBUMIN HUMAN
     Indication: HYPOALBUMINAEMIA
     Dosage: 100 ML, QD (ONE BOTTLE/20PERCENT)
     Route: 042
     Dates: start: 20170724, end: 20170805
  8. ALBUMIN [Concomitant]
     Active Substance: ALBUMIN HUMAN
     Indication: SHOCK HAEMORRHAGIC
  9. PENTAMIDINE [Concomitant]
     Active Substance: PENTAMIDINE
     Indication: PNEUMOCYSTIS JIROVECII INFECTION
     Dosage: 300 MG, QD
     Route: 042
     Dates: start: 20170804, end: 20170804
  10. GANCICLOVIR. [Concomitant]
     Active Substance: GANCICLOVIR
     Indication: ANTIVIRAL TREATMENT
     Dosage: MAINTENANCE DOSE
     Dates: start: 20170901
  11. GANCICLOVIR. [Concomitant]
     Active Substance: GANCICLOVIR
     Dosage: INDUCTION DOSE
     Dates: start: 20170907
  12. ACICLOVIR [Concomitant]
     Active Substance: ACYCLOVIR
     Indication: GENITAL HERPES
  13. CIPROFLOXACIN. [Concomitant]
     Active Substance: CIPROFLOXACIN
     Indication: ANTIBIOTIC THERAPY
     Dosage: 500 MG, BID
     Route: 048
     Dates: start: 20170727, end: 20170807
  14. SPIRONOLACTONE. [Concomitant]
     Active Substance: SPIRONOLACTONE
     Indication: PRIMARY HYPERALDOSTERONISM
     Dosage: 25 MG, BID
     Route: 048
     Dates: start: 20170804, end: 20170807
  15. CANCIDAS [Concomitant]
     Active Substance: CASPOFUNGIN ACETATE
     Indication: NEUTROPENIA
     Dosage: 70 MG, QD
     Route: 042
     Dates: start: 20170806, end: 20170806
  16. FUROSEMIDE. [Concomitant]
     Active Substance: FUROSEMIDE
     Indication: ESSENTIAL HYPERTENSION
     Dosage: 20 MG, TID
     Route: 042
     Dates: start: 20170724, end: 20170807
  17. CANCIDAS [Concomitant]
     Active Substance: CASPOFUNGIN ACETATE
     Dosage: 50 MG, QD
     Route: 042
     Dates: start: 20170807, end: 20170807
  18. ATIVAN [Concomitant]
     Active Substance: LORAZEPAM
     Indication: DEPRESSION
  19. FUROSEMIDE. [Concomitant]
     Active Substance: FUROSEMIDE
     Indication: CARDIAC FAILURE CONGESTIVE
  20. TEICONIN [Concomitant]
     Indication: STAPHYLOCOCCAL INFECTION
     Dosage: 400 MG, QD
     Route: 042
     Dates: start: 20170724, end: 20170807
  21. NYSTATIN. [Concomitant]
     Active Substance: NYSTATIN
     Indication: CANDIDA INFECTION
     Dosage: 500 ML, QD
     Dates: start: 20170725, end: 20170807
  22. ATIVAN [Concomitant]
     Active Substance: LORAZEPAM
     Indication: ANXIETY
     Dosage: 2 MG, TID
     Route: 042
     Dates: start: 20170724, end: 20170807
  23. ATIVAN [Concomitant]
     Active Substance: LORAZEPAM
     Indication: TENSION
  24. ATIVAN [Concomitant]
     Active Substance: LORAZEPAM
     Indication: ANAESTHETIC PREMEDICATION
  25. FENTANYL. [Concomitant]
     Active Substance: FENTANYL
     Indication: INDUCTION OF ANAESTHESIA
  26. MACPERAN [Concomitant]
     Active Substance: METOCLOPRAMIDE HYDROCHLORIDE
     Indication: PROPHYLAXIS OF NAUSEA AND VOMITING
     Dosage: 10 MG, QD
     Route: 042
     Dates: start: 20170725, end: 20170725
  27. CIDOFOVIR. [Concomitant]
     Active Substance: CIDOFOVIR
     Indication: CYSTITIS HAEMORRHAGIC
  28. GANCICLOVIR. [Concomitant]
     Active Substance: GANCICLOVIR
     Dosage: UNK, BID
     Dates: start: 20170911
  29. ONSERAN [Concomitant]
     Indication: VOMITING
  30. PANTOPRAZOLE SODIUM SESQUIHYDRATE [Concomitant]
     Active Substance: PANTOPRAZOLE SODIUM
     Indication: GASTROOESOPHAGEAL REFLUX DISEASE
  31. SPIRONOLACTONE. [Concomitant]
     Active Substance: SPIRONOLACTONE
     Indication: HYPOKALAEMIA
  32. SPIRONOLACTONE. [Concomitant]
     Active Substance: SPIRONOLACTONE
     Indication: CARDIAC FAILURE CONGESTIVE
  33. MYCAMINE [Concomitant]
     Active Substance: MICAFUNGIN SODIUM
     Indication: OPPORTUNISTIC INFECTION PROPHYLAXIS
     Dosage: 50 MG, BID
     Route: 042
     Dates: start: 20170724, end: 20170804
  34. FOSCARNET [Concomitant]
     Active Substance: FOSCARNET
     Indication: CYTOMEGALOVIRUS INFECTION
     Dosage: UNK
     Dates: start: 20170807
  35. ONSERAN [Concomitant]
     Indication: PROPHYLAXIS OF NAUSEA AND VOMITING
     Dosage: 8 MG, TID
     Route: 042
     Dates: start: 20170724, end: 20170807
  36. MEROPENEM. [Concomitant]
     Active Substance: MEROPENEM
     Indication: INFECTION
     Dosage: 1 G, TID
     Route: 042
     Dates: start: 20170724, end: 20170807
  37. ACICLOVIR [Concomitant]
     Active Substance: ACYCLOVIR
     Indication: HERPES SIMPLEX
     Dosage: 340 MG, TID
     Route: 042
     Dates: start: 20170725, end: 20170807
  38. TEICONIN [Concomitant]
     Indication: BACTERIAL INFECTION
  39. HEPARIN [Concomitant]
     Active Substance: HEPARIN SODIUM
     Indication: ANTICOAGULANT THERAPY
     Dosage: 1000 IU, QD
     Route: 054
     Dates: start: 20170725, end: 20170807
  40. PHOSTEN [Concomitant]
     Indication: ELECTROLYTE SUBSTITUTION THERAPY
     Dosage: 20 ML, QD
     Route: 042
     Dates: start: 20170803, end: 20170807
  41. DEFITELIO [Suspect]
     Active Substance: DEFIBROTIDE SODIUM
     Indication: VENOOCCLUSIVE DISEASE
     Dosage: 24.9 MG/KG, QID
     Route: 042
     Dates: start: 20170803, end: 20170816
  42. FUROSEMIDE. [Concomitant]
     Active Substance: FUROSEMIDE
     Indication: ACUTE PULMONARY OEDEMA
  43. PANTOPRAZOLE SODIUM SESQUIHYDRATE [Concomitant]
     Active Substance: PANTOPRAZOLE SODIUM
     Indication: GASTRIC ULCER
     Dosage: 40 MG, QD
     Route: 042
     Dates: start: 20170724, end: 20170807
  44. MEROPENEM. [Concomitant]
     Active Substance: MEROPENEM
     Indication: SEPSIS
  45. URSA [Concomitant]
     Active Substance: URSODIOL
     Indication: LIVER DISORDER
     Dosage: 400 MG, TID
     Route: 048
     Dates: start: 20170724, end: 20170807
  46. CORTISOLU [Concomitant]
     Active Substance: HYDROCORTISONE SODIUM SUCCINATE
     Indication: STEROID THERAPY
     Dosage: 200 MG, QD
     Route: 042
     Dates: start: 20170725, end: 20170725
  47. CIDOFOVIR. [Concomitant]
     Active Substance: CIDOFOVIR
     Indication: BK VIRUS INFECTION
     Dosage: UNK, QID
  48. SPIRONOLACTONE. [Concomitant]
     Active Substance: SPIRONOLACTONE
     Indication: HYPERTENSION
  49. NYSTATIN. [Concomitant]
     Active Substance: NYSTATIN
     Indication: PROPHYLAXIS
  50. GRASIN [Concomitant]
     Indication: NEUTROPENIA
     Dosage: 150 ?G, QD
     Route: 042
     Dates: start: 20170729, end: 20170805
  51. FENTANYL. [Concomitant]
     Active Substance: FENTANYL
     Indication: ANALGESIC THERAPY
     Dosage: 50 ?G, QD
     Route: 042
     Dates: start: 20170801, end: 20170807

REACTIONS (13)
  - Pulmonary oedema [Unknown]
  - Dehydration [Unknown]
  - Hypophagia [Unknown]
  - BK virus infection [Not Recovered/Not Resolved]
  - Haematuria [Unknown]
  - Pericardial effusion [Recovering/Resolving]
  - Vasculitis [Recovered/Resolved]
  - Hypertension [Recovering/Resolving]
  - Chronic kidney disease [Unknown]
  - Cystitis haemorrhagic [Recovering/Resolving]
  - Cytomegalovirus infection [Recovered/Resolved]
  - Blood creatinine increased [Recovering/Resolving]
  - Pleural effusion [Unknown]

NARRATIVE: CASE EVENT DATE: 20170807
